FAERS Safety Report 5441236-0 (Version None)
Quarter: 2007Q3

REPORT INFORMATION
  Report Type: 
  Country: None (occurrence: None)
  Receive Date: 20070901
  Receipt Date: 20070821
  Transmission Date: 20080115
  Serious: Yes (Hospitalization, Other)
  Sender: FDA-Public Use
  Company Number: GB-PFIZER INC-2007070922

PATIENT
  Age: 41 Year
  Sex: Female

DRUGS (1)
  1. VARENICLINE TABLETS [Suspect]
     Route: 048

REACTIONS (6)
  - ABDOMINAL DISTENSION [None]
  - DECREASED APPETITE [None]
  - DYSURIA [None]
  - FATIGUE [None]
  - FLATULENCE [None]
  - SUPRAPUBIC PAIN [None]
